FAERS Safety Report 7999697-9 (Version None)
Quarter: 2011Q4

REPORT INFORMATION
  Report Type: 
  Country: None (occurrence: None)
  Receive Date: 20111221
  Receipt Date: 20111214
  Transmission Date: 20120403
  Serious: Yes (Hospitalization)
  Sender: FDA-Public Use
  Company Number: US-ASTRAZENECA-2011SE32433

PATIENT
  Age: 83 Year
  Sex: Female

DRUGS (3)
  1. CRESTOR [Suspect]
     Route: 048
  2. ARIMIDEX [Suspect]
     Route: 048
  3. NEXIUM [Suspect]
     Route: 048

REACTIONS (3)
  - CELLULITIS [None]
  - GAIT DISTURBANCE [None]
  - DYSPNOEA [None]
